FAERS Safety Report 6231892-1 (Version None)
Quarter: 2009Q2

REPORT INFORMATION
  Report Type: 
  Country: None (occurrence: None)
  Receive Date: 20090616
  Receipt Date: 20090612
  Transmission Date: 20091009
  Serious: Yes (Other)
  Sender: FDA-Public Use
  Company Number: IT-BRISTOL-MYERS SQUIBB COMPANY-14662779

PATIENT
  Age: 84 Year
  Sex: Male

DRUGS (3)
  1. APROVEL TABS 150 MG [Suspect]
     Indication: HYPERTENSION
     Dosage: THERP DURATION: 8 YRS 4 WEEKS 5 DAYS- TIME TO ONSET:7 YRS 51 WEEKS 6 DAYS
     Route: 048
     Dates: start: 20010101, end: 20090202
  2. ASPIRIN [Suspect]
     Dosage: ASCRIPTIN TABLET 471.5MG; THERP DURATION: 6 YRS 42WEEKS 5 DAYS- TIME TO ONSET:6YRS 37 WEEKS 5 DAYS
     Route: 048
     Dates: start: 20020411, end: 20090202
  3. ZOCOR [Suspect]
     Indication: HYPERCHOLESTEROLAEMIA
     Dosage: THERP DURATION: 5 YRS 49WEEKS 1 DAYS- TIME TO ONSET:5 YRS 44 WEEKS 1 DAY, FORMULATION TABLET, 20 MG
     Route: 048
     Dates: start: 20030225, end: 20090202

REACTIONS (1)
  - HEPATIC NEOPLASM MALIGNANT [None]
